FAERS Safety Report 8452796-X (Version None)
Quarter: 2012Q2

REPORT INFORMATION
  Report Type: 
  Country: None (occurrence: None)
  Receive Date: 20120620
  Receipt Date: 20120426
  Transmission Date: 20120825
  Serious: No
  Sender: FDA-Public Use
  Company Number: US-VERTEX PHARMACEUTICALS INC.-AE-2012-006032

PATIENT
  Sex: Male
  Weight: 74.91 kg

DRUGS (4)
  1. DIABETIC MEDICATIONS [Concomitant]
     Indication: DIABETES MELLITUS
  2. INCIVEK [Suspect]
     Indication: HEPATITIS C
     Route: 048
     Dates: start: 20120322
  3. PEGASYS [Concomitant]
     Indication: HEPATITIS C
     Dates: start: 20120322
  4. RIBAVIRIN [Concomitant]
     Indication: HEPATITIS C

REACTIONS (4)
  - ANORECTAL DISCOMFORT [None]
  - ALOPECIA [None]
  - BLOOD GLUCOSE DECREASED [None]
  - VISION BLURRED [None]
